FAERS Safety Report 7002879-6 (Version None)
Quarter: 2010Q3

REPORT INFORMATION
  Report Type: 
  Country: None (occurrence: None)
  Receive Date: 20100920
  Receipt Date: 20100120
  Transmission Date: 20110219
  Serious: No
  Sender: FDA-Public Use
  Company Number: US-ASTRAZENECA-2010SE02685

PATIENT
  Age: 45 Year
  Sex: Female

DRUGS (2)
  1. SEROQUEL XR [Suspect]
     Dosage: 200 MG IN THREE DOSES A DAY
     Route: 048
  2. SEROQUEL XR [Suspect]
     Route: 048

REACTIONS (2)
  - ILL-DEFINED DISORDER [None]
  - RETCHING [None]
